FAERS Safety Report 8614670-5 (Version None)
Quarter: 2012Q3

REPORT INFORMATION
  Report Type: 
  Country: None (occurrence: None)
  Receive Date: 20120823
  Receipt Date: 20120810
  Transmission Date: 20120928
  Serious: Yes (Other)
  Sender: FDA-Public Use
  Company Number: JP-VERTEX PHARMACEUTICAL INC.-2012-019712

PATIENT
  Age: 63 Year
  Sex: Male

DRUGS (11)
  1. VX-950 [Suspect]
     Indication: HEPATITIS C
     Dosage: 2250 MG, QD
     Route: 048
     Dates: start: 20120511, end: 20120629
  2. REBETOL [Concomitant]
     Indication: HEPATITIS C
     Dosage: 800 MG, QD
     Route: 048
     Dates: start: 20120511, end: 20120601
  3. PEG-INTRON [Concomitant]
     Dosage: 60 A?G, UNK
     Route: 058
     Dates: start: 20120622, end: 20120622
  4. PREDNISOLONE [Concomitant]
     Dosage: 10 MG, QD
     Route: 048
     Dates: start: 20120711
  5. PREDNISOLONE [Concomitant]
     Dosage: 5 MG, QD
     Route: 048
     Dates: start: 20120718
  6. REBETOL [Concomitant]
     Dosage: 400 MG, QD
     Dates: start: 20120606, end: 20120614
  7. PREDNISOLONE [Concomitant]
     Dosage: 15 MG, QD
     Route: 048
     Dates: start: 20120704
  8. PREDNISOLONE [Concomitant]
     Dosage: 2.5 MG, QD
     Route: 048
     Dates: start: 20120727
  9. PEG-INTRON [Concomitant]
     Indication: HEPATITIS C
     Dosage: 1.5 A?G/KG, UNK
     Route: 058
     Dates: start: 20120511, end: 20120615
  10. REBETOL [Concomitant]
     Dosage: 600 MG, QD
     Route: 048
     Dates: start: 20120602, end: 20120605
  11. REBETOL [Concomitant]
     Dosage: 200 MG, QD
     Dates: start: 20120615, end: 20120629

REACTIONS (1)
  - RETINOPATHY [None]
